FAERS Safety Report 26038128 (Version 1)
Quarter: 2025Q4

REPORT INFORMATION
  Report Type: Spontaneous
  Country: US (occurrence: US)
  Receive Date: 20251113
  Receipt Date: 20251113
  Transmission Date: 20260118
  Serious: No
  Sender: ROCHE
  Company Number: US-ROCHE-10000426154

PATIENT
  Age: 73 Year
  Sex: Male

DRUGS (1)
  1. LUNSUMIO [Suspect]
     Active Substance: MOSUNETUZUMAB-AXGB
     Indication: Product use in unapproved indication
     Route: 065

REACTIONS (3)
  - Dry skin [Unknown]
  - Fatigue [Unknown]
  - Decreased appetite [Unknown]
